FAERS Safety Report 5181015-5 (Version None)
Quarter: 2006Q4

REPORT INFORMATION
  Report Type: 
  Country: None (occurrence: None)
  Receive Date: 20061212
  Receipt Date: 20060313
  Transmission Date: 20070319
  Serious: Yes (Hospitalization)
  Sender: FDA-Public Use
  Company Number: GB-GUERBET-20060002

PATIENT
  Age: 26 Year
  Sex: Female

DRUGS (9)
  1. DOTAREM: 05GS613A / MEGLUMINE GADOTERATE [Suspect]
     Indication: NUCLEAR MAGNETIC RESONANCE IMAGING
     Dosage: 15, MILLILITRE(S), 1, INTRAVENOUS
     Route: 042
     Dates: start: 20051026
  2. HRF [Concomitant]
  3. GONADORELIN INJ [Concomitant]
  4. PROTIRELIN [Concomitant]
  5. THYROTROPHIN [Concomitant]
  6. SYNACTHENE [Concomitant]
  7. TETRACOSACTIDE [Concomitant]
  8. EMLA [Concomitant]
  9. LIDOCAINE [Concomitant]

REACTIONS (2)
  - EXTRAVASATION [None]
  - INJECTION SITE ABSCESS [None]
